FAERS Safety Report 18198554 (Version 2)
Quarter: 2020Q3

REPORT INFORMATION
  Report Type: Report from Study
  Country: FI (occurrence: FI)
  Receive Date: 20200826
  Receipt Date: 20200914
  Transmission Date: 20201103
  Serious: Yes (Other)
  Sender: FDA-Public Use
  Company Number: FI-MYLANLABS-2020M1073484

PATIENT
  Age: 27 Year
  Sex: Female

DRUGS (4)
  1. MALTOFER                           /00023548/ [Concomitant]
     Active Substance: IRON POLYMALTOSE
     Dosage: UNK
  2. LEPONEX [Suspect]
     Active Substance: CLOZAPINE
     Indication: SCHIZOPHRENIA
     Dosage: 25 MILLIGRAM, QD
     Dates: start: 20200416, end: 20200708
  3. LEPONEX [Suspect]
     Active Substance: CLOZAPINE
     Dosage: 200 MILLIGRAM, QD
     Dates: start: 20200708
  4. BISOPROLOL [Concomitant]
     Active Substance: BISOPROLOL
     Dosage: UNK, SMALL DOSES

REACTIONS (7)
  - Haemoglobin decreased [Recovered/Resolved]
  - Lymphocyte percentage increased [Recovered/Resolved]
  - Monocyte count increased [Not Recovered/Not Resolved]
  - Mean cell haemoglobin concentration decreased [Unknown]
  - Eosinophil count increased [Recovered/Resolved]
  - Neutropenia [Recovered/Resolved]
  - Mean cell volume decreased [Unknown]

NARRATIVE: CASE EVENT DATE: 2020
